FAERS Safety Report 9549536 (Version 3)
Quarter: 2013Q4

REPORT INFORMATION
  Report Type: Spontaneous
  Country: AU (occurrence: AU)
  Receive Date: 20130924
  Receipt Date: 20131119
  Transmission Date: 20140711
  Serious: Yes (Life-Threatening)
  Sender: FDA-Public Use
  Company Number: AU-BAXTER-2013BAX037029

PATIENT
  Age: 60 Year
  Sex: Female

DRUGS (9)
  1. KIOVIG NORMAL IMMUNOGLOBULIN (HUMAN) 10G/100ML FOR INTRAVENOUS USE INJ [Suspect]
     Indication: PRODUCT USED FOR UNKNOWN INDICATION
     Route: 042
     Dates: start: 20130918, end: 20130918
  2. KIOVIG NORMAL IMMUNOGLOBULIN (HUMAN) 10G/100ML FOR INTRAVENOUS USE INJ [Suspect]
     Route: 042
     Dates: start: 20130918, end: 20130918
  3. KIOVIG NORMAL IMMUNOGLOBULIN (HUMAN) 10G/100ML FOR INTRAVENOUS USE INJ [Suspect]
     Route: 042
     Dates: start: 20130918, end: 20130918
  4. TAZOCIN [Concomitant]
     Indication: ANTIBIOTIC THERAPY
     Route: 042
     Dates: start: 20130918
  5. TAZOCIN [Concomitant]
     Indication: PNEUMONIA
  6. VANCOMYCIN [Concomitant]
     Indication: PNEUMONIA
     Route: 042
     Dates: start: 20130918
  7. VANCOMYCIN [Concomitant]
     Indication: ANTIFUNGAL PROPHYLAXIS
  8. AZITHROMYCIN [Concomitant]
     Indication: PNEUMONIA
     Route: 042
     Dates: start: 20130918
  9. AZITHROMYCIN [Concomitant]
     Indication: ANTIBIOTIC THERAPY

REACTIONS (4)
  - Chills [Recovered/Resolved]
  - Heart rate increased [Recovered/Resolved]
  - Blood pressure increased [Recovered/Resolved]
  - Stridor [Recovered/Resolved]
